FAERS Safety Report 8586282-3 (Version None)
Quarter: 2012Q3

REPORT INFORMATION
  Report Type: 
  Country: None (occurrence: None)
  Receive Date: 20120810
  Receipt Date: 20120806
  Transmission Date: 20120928
  Serious: Yes (Hospitalization)
  Sender: FDA-Public Use
  Company Number: DE-TEVA-348532USA

PATIENT
  Sex: Male
  Weight: 80.8 kg

DRUGS (5)
  1. RITUXIMAB [Concomitant]
     Dates: start: 20120702, end: 20120730
  2. TREANDA [Suspect]
     Dosage: UID/QD
     Route: 042
     Dates: start: 20120702, end: 20120703
  3. BISOPROLOL FUMARATE [Concomitant]
     Dosage: HALF TABLET DAILY
  4. ASPIRIN [Concomitant]
     Dosage: 100  DAILY;
  5. DIOVAN [Concomitant]
     Dosage: ONCE NIGHTLY

REACTIONS (3)
  - DERMATITIS ALLERGIC [None]
  - PYREXIA [None]
  - SYSTEMIC INFLAMMATORY RESPONSE SYNDROME [None]
